FAERS Safety Report 6636755-5 (Version None)
Quarter: 2010Q1

REPORT INFORMATION
  Report Type: 
  Country: None (occurrence: None)
  Receive Date: 20100316
  Receipt Date: 20100308
  Transmission Date: 20100710
  Serious: Yes (Hospitalization, Other)
  Sender: FDA-Public Use
  Company Number: JP-CEPHALON-US025453

PATIENT
  Sex: Male

DRUGS (34)
  1. TRISENOX [Suspect]
     Indication: ACUTE PROMYELOCYTIC LEUKAEMIA
     Dates: start: 20090121, end: 20090205
  2. PHENYTOIN [Concomitant]
     Route: 065
     Dates: start: 20090120, end: 20090209
  3. PHENYTOIN [Concomitant]
     Route: 065
     Dates: start: 20090207, end: 20090209
  4. TOSUFLOXACIN TOSILATE [Concomitant]
     Route: 065
     Dates: start: 20090121, end: 20090130
  5. OXETHAZAINE [Concomitant]
     Route: 048
     Dates: start: 20090207, end: 20090207
  6. OXETHAZAINE [Concomitant]
     Route: 048
     Dates: start: 20090208, end: 20090208
  7. OXETHAZAINE [Concomitant]
     Route: 048
     Dates: start: 20090209, end: 20090209
  8. LANSOPRAZOLE [Concomitant]
     Route: 065
     Dates: start: 20090121, end: 20090207
  9. SODIUM VALPROATE [Concomitant]
     Route: 065
     Dates: start: 20090121, end: 20090206
  10. SULFAMETHOXAZOLE AND TRIMETHOPRIM [Concomitant]
     Route: 048
     Dates: start: 20090121, end: 20090203
  11. SULFAMETHOXAZOLE AND TRIMETHOPRIM [Concomitant]
     Route: 048
     Dates: start: 20090207, end: 20090209
  12. ALENDRONATE SODIUM [Concomitant]
     Route: 065
     Dates: start: 20090121, end: 20090203
  13. BROTIZOLAM [Concomitant]
     Route: 065
     Dates: start: 20090120, end: 20090209
  14. CLINDAMYCIN PHOSPHATE [Concomitant]
     Route: 065
     Dates: start: 20090121, end: 20090209
  15. OFLOXACIN [Concomitant]
     Route: 065
     Dates: start: 20090208
  16. FENTANYL [Concomitant]
     Route: 065
     Dates: start: 20090204
  17. SODIUM HYALURONATE [Concomitant]
     Dates: start: 20090203
  18. DIPHENHYDRAMINE HYDROCHLORIDE [Concomitant]
     Dates: start: 20090121
  19. TPN [Concomitant]
     Dates: start: 20090202
  20. GRANISETRON HYDROCHLORIDE [Concomitant]
     Dates: start: 20090122, end: 20090129
  21. ACETAMINOPHEN [Concomitant]
     Dates: start: 20090120
  22. ASPIRIN DIALUMINATE [Concomitant]
     Dates: start: 20090122, end: 20090204
  23. METOCLOPRAMIDE [Concomitant]
     Dates: start: 20090130, end: 20090203
  24. METOCLOPRAMIDE [Concomitant]
     Dates: start: 20090204, end: 20090204
  25. SENNOSIDE [Concomitant]
     Dates: start: 20090128, end: 20090128
  26. SENNOSIDE [Concomitant]
     Dates: start: 20090130, end: 20090130
  27. SENNOSIDE [Concomitant]
     Dates: start: 20090202, end: 20090203
  28. PENTAZOCINE LACTATE [Concomitant]
     Dates: start: 20090120
  29. MAGNESIUM OXIDE [Concomitant]
     Dates: start: 20090128, end: 20090129
  30. MAGNESIUM OXIDE [Concomitant]
     Dates: start: 20090201, end: 20090201
  31. TAZOBACTAN/ PIPERACILLIN [Concomitant]
     Dates: start: 20090204
  32. MIXED AMINO ACID CARBOHYDRATE ELECTROLYTE VITAMIN COMBINE [Concomitant]
     Dates: start: 20090204
  33. VITAMIN B COMPLEX CAP [Concomitant]
     Dates: start: 20090204
  34. MANGANESE CHLORIDE / ZINC SULFATE COMBINED DRUG [Concomitant]
     Dates: start: 20090204

REACTIONS (4)
  - ELECTROCARDIOGRAM QT PROLONGED [None]
  - GASTROINTESTINAL HAEMORRHAGE [None]
  - PERICARDIAL EFFUSION [None]
  - PLEURAL EFFUSION [None]
